FAERS Safety Report 16909750 (Version 5)
Quarter: 2020Q1

REPORT INFORMATION
  Report Type: Spontaneous
  Country: US (occurrence: US)
  Receive Date: 20191011
  Receipt Date: 20200128
  Transmission Date: 20200409
  Serious: Yes (Death, Hospitalization)
  Sender: FDA-Public Use
  Company Number: US-ACTELION-A-US2019-195812

PATIENT
  Age: 80 Year
  Sex: Male

DRUGS (15)
  1. UPTRAVI [Suspect]
     Active Substance: SELEXIPAG
     Indication: PULMONARY ARTERIAL HYPERTENSION
     Dosage: 800 MCG, BID
     Route: 048
     Dates: start: 20190718, end: 20200107
  2. OMEPRAZOLE. [Concomitant]
     Active Substance: OMEPRAZOLE
  3. FLONASE [Concomitant]
     Active Substance: FLUTICASONE PROPIONATE
  4. ADCIRCA [Concomitant]
     Active Substance: TADALAFIL
  5. MULTIVITAMIN [Concomitant]
     Active Substance: VITAMINS
  6. ZOFRAN [Concomitant]
     Active Substance: ONDANSETRON HYDROCHLORIDE
  7. UPTRAVI [Suspect]
     Active Substance: SELEXIPAG
     Dosage: 200 MCG, BID
     Route: 048
  8. TRACLEER [Suspect]
     Active Substance: BOSENTAN
     Indication: PULMONARY ARTERIAL HYPERTENSION
     Dosage: 125 MG, BID
     Route: 048
     Dates: start: 20171228, end: 20200107
  9. ALBUTEROL. [Concomitant]
     Active Substance: ALBUTEROL
  10. DOCUSATE [Concomitant]
     Active Substance: DOCUSATE
  11. PREDNISONE. [Concomitant]
     Active Substance: PREDNISONE
  12. FERROUS SULFATE. [Concomitant]
     Active Substance: FERROUS SULFATE
  13. ARICEPT [Concomitant]
     Active Substance: DONEPEZIL HYDROCHLORIDE
  14. METFORMIN [Concomitant]
     Active Substance: METFORMIN HYDROCHLORIDE
  15. ZOCOR [Concomitant]
     Active Substance: SIMVASTATIN

REACTIONS (8)
  - Asthenia [Unknown]
  - Eye pain [Unknown]
  - Blood sodium increased [Unknown]
  - Renal impairment [Unknown]
  - Memory impairment [Unknown]
  - Pain in extremity [Unknown]
  - Right ventricular failure [Fatal]
  - Product dose omission [Unknown]

NARRATIVE: CASE EVENT DATE: 20190828
